FAERS Safety Report 5380843-0 (Version None)
Quarter: 2007Q3

REPORT INFORMATION
  Report Type: 
  Country: None (occurrence: None)
  Receive Date: 20070706
  Receipt Date: 20070702
  Transmission Date: 20080115
  Serious: Yes (Other)
  Sender: FDA-Public Use
  Company Number: US-ASTRAZENECA-2007UW15397

PATIENT
  Age: 86 Year
  Sex: Male
  Weight: 59 kg

DRUGS (12)
  1. PLENDIL [Suspect]
     Indication: HYPERTENSION
     Route: 048
  2. PLENDIL [Suspect]
     Route: 048
  3. COZAAR [Concomitant]
  4. METOPROLOL SUCCINATE [Concomitant]
  5. MOBIC [Concomitant]
  6. HYDROXYUREA [Concomitant]
  7. PREVACID [Concomitant]
  8. ASPIRIN [Concomitant]
  9. HYDROCODONE BITARTRATE [Concomitant]
  10. POTASSIUM ACETATE [Concomitant]
  11. MULTI-VITAMIN [Concomitant]
  12. ENSURE [Concomitant]

REACTIONS (2)
  - DIARRHOEA [None]
  - WEIGHT DECREASED [None]
